FAERS Safety Report 20010921 (Version 1)
Quarter: 2021Q4

REPORT INFORMATION
  Report Type: Spontaneous
  Country: US (occurrence: US)
  Receive Date: 20211029
  Receipt Date: 20211029
  Transmission Date: 20220303
  Serious: No
  Sender: FDA-Public Use
  Company Number: US-GLAXOSMITHKLINE-USCH2021075198

PATIENT
  Age: 56 Year
  Sex: Female

DRUGS (1)
  1. NICODERM CQ [Suspect]
     Active Substance: NICOTINE
     Indication: Drug withdrawal maintenance therapy
     Dosage: UNK

REACTIONS (8)
  - Pruritus [Unknown]
  - Pain in extremity [Unknown]
  - Scab [Unknown]
  - Burning sensation [Unknown]
  - Scar [Unknown]
  - Arthropod sting [Unknown]
  - Blister [Unknown]
  - Erythema [Unknown]
